FAERS Safety Report 5921866-X (Version None)
Quarter: 2008Q4

REPORT INFORMATION
  Report Type: 
  Country: None (occurrence: None)
  Receive Date: 20081016
  Receipt Date: 20081016
  Transmission Date: 20090506
  Serious: Yes (Other)
  Sender: FDA-Public Use
  Company Number: None

PATIENT
  Age: 59 Year
  Sex: Male
  Weight: 60.3284 kg

DRUGS (2)
  1. OMNISCAN [Suspect]
     Dates: start: 20080705
  2. OMNISCAN [Suspect]
     Dates: start: 20080831

REACTIONS (6)
  - ARTHRALGIA [None]
  - FEELING ABNORMAL [None]
  - LACERATION [None]
  - OVERDOSE [None]
  - SKIN INDURATION [None]
  - SPLINTER [None]
